FAERS Safety Report 7716846-8 (Version None)
Quarter: 2011Q3

REPORT INFORMATION
  Report Type: 
  Country: None (occurrence: None)
  Receive Date: 20110829
  Receipt Date: 20110819
  Transmission Date: 20111222
  Serious: Yes (Other)
  Sender: FDA-Public Use
  Company Number: US-ASTRAZENECA-2011SE04663

PATIENT
  Age: 25277 Day
  Sex: Female

DRUGS (14)
  1. SEROQUEL [Suspect]
     Route: 048
  2. METOPROLOL [Concomitant]
     Dosage: 50 MG IN THE MORNING
     Route: 048
  3. SEROQUEL [Suspect]
     Indication: POST-TRAUMATIC STRESS DISORDER
     Route: 048
     Dates: start: 20030101
  4. SEROQUEL [Suspect]
     Route: 048
  5. SEROQUEL [Suspect]
     Route: 048
  6. PLAVIX [Concomitant]
  7. SEROQUEL [Suspect]
     Indication: INSOMNIA
     Route: 048
     Dates: start: 20030101
  8. SEROQUEL [Suspect]
     Route: 048
  9. SEROQUEL [Suspect]
     Indication: SLEEP DISORDER
     Route: 048
     Dates: start: 20030101
  10. SEROQUEL [Suspect]
     Route: 048
  11. SEROQUEL [Suspect]
     Route: 048
  12. SIMAVASTATIN [Concomitant]
  13. METOPROLOL [Concomitant]
     Indication: HYPERTENSION
     Dosage: 50 MG IN THE MORNING AND AT BEDTIME
     Route: 048
     Dates: start: 20080901
  14. LEVOTHYROXINE SODIUM [Concomitant]

REACTIONS (5)
  - DELUSIONAL PERCEPTION [None]
  - INSOMNIA [None]
  - VICTIM OF SEXUAL ABUSE [None]
  - DRUG INEFFECTIVE FOR UNAPPROVED INDICATION [None]
  - OFF LABEL USE [None]
